FAERS Safety Report 16842661 (Version 2)
Quarter: 2019Q4

REPORT INFORMATION
  Report Type: Spontaneous
  Country: US (occurrence: US)
  Receive Date: 20190924
  Receipt Date: 20191009
  Transmission Date: 20200122
  Serious: Yes (Hospitalization, Other)
  Sender: FDA-Public Use
  Company Number: US-ACADIA PHARMACEUTICALS INC.-ACA-2019-014166

PATIENT
  Age: 68 Year
  Sex: Male

DRUGS (6)
  1. PIMAVANSERIN [Suspect]
     Active Substance: PIMAVANSERIN
     Indication: DELUSION
  2. QUETIAPINE. [Concomitant]
     Active Substance: QUETIAPINE
     Dosage: 25 MG, BEDTIME
  3. LEVODOPA [Concomitant]
     Active Substance: LEVODOPA
     Indication: PRODUCT USED FOR UNKNOWN INDICATION
  4. PIMAVANSERIN [Suspect]
     Active Substance: PIMAVANSERIN
     Indication: PARKINSON^S DISEASE PSYCHOSIS
     Dosage: 34 MG
  5. PIMAVANSERIN [Suspect]
     Active Substance: PIMAVANSERIN
     Indication: HALLUCINATION, VISUAL
  6. QUETIAPINE. [Concomitant]
     Active Substance: QUETIAPINE
     Indication: PSYCHOTIC DISORDER
     Dosage: 50 MG, UNK

REACTIONS (7)
  - Hallucination [Not Recovered/Not Resolved]
  - Delusion [Unknown]
  - Depressed level of consciousness [Recovering/Resolving]
  - Agitation [Recovered/Resolved]
  - Confusional state [Recovered/Resolved]
  - Aggression [Recovering/Resolving]
  - Encephalopathy [Not Recovered/Not Resolved]
